FAERS Safety Report 23988088 (Version 1)
Quarter: 2024Q2

REPORT INFORMATION
  Report Type: Spontaneous
  Country: US (occurrence: None)
  Receive Date: 20240619
  Receipt Date: 20240619
  Transmission Date: 20240716
  Serious: No
  Sender: FDA-Public Use
  Company Number: 2024A136474

PATIENT
  Age: 182 Month
  Sex: Male
  Weight: 33.7 kg

DRUGS (2)
  1. SYMBICORT [Suspect]
     Active Substance: BUDESONIDE\FORMOTEROL FUMARATE DIHYDRATE
     Indication: Asthma
     Dosage: UNKNOWN
     Route: 055
  2. DUPIXENT [Suspect]
     Active Substance: DUPILUMAB
     Dosage: 600MG/ML
     Route: 058

REACTIONS (15)
  - Asthma [Recovering/Resolving]
  - Injection site erythema [Recovered/Resolved]
  - Injection site pruritus [Recovered/Resolved]
  - Injection site swelling [Recovered/Resolved]
  - Enterovirus infection [Unknown]
  - Dyspnoea [Unknown]
  - Headache [Unknown]
  - Dizziness [Unknown]
  - Eye pain [Unknown]
  - Cough [Recovered/Resolved]
  - Sneezing [Unknown]
  - Nasal congestion [Unknown]
  - Chest pain [Unknown]
  - Malaise [Unknown]
  - Drug ineffective [Unknown]

NARRATIVE: CASE EVENT DATE: 20231201
